FAERS Safety Report 4963712-7 (Version None)
Quarter: 2006Q1

REPORT INFORMATION
  Report Type: 
  Country: None (occurrence: None)
  Receive Date: 20060330
  Receipt Date: 20060320
  Transmission Date: 20060701
  Serious: Yes (Other)
  Sender: FDA-Public Use
  Company Number: 2006BH005968

PATIENT
  Sex: 0

DRUGS (1)
  1. BALANCED SALT SOLUTION [Suspect]
     Dosage: 500 ML

REACTIONS (3)
  - BLOOD CULTURE POSITIVE [None]
  - ENDOPHTHALMITIS [None]
  - STREPTOCOCCAL INFECTION [None]
